FAERS Safety Report 9098298 (Version 2)
Quarter: 2013Q2

REPORT INFORMATION
  Report Type: Spontaneous
  Country: JP (occurrence: JP)
  Receive Date: 20130213
  Receipt Date: 20130402
  Transmission Date: 20140414
  Serious: Yes (Life-Threatening, Hospitalization, Disabling)
  Sender: FDA-Public Use
  Company Number: PHHY2013JP013582

PATIENT
  Age: 49 Year
  Sex: Male

DRUGS (2)
  1. TASIGNA [Suspect]
     Indication: CHRONIC MYELOID LEUKAEMIA
     Dosage: 400 MG, BID
     Route: 048
     Dates: start: 201210
  2. TASIGNA [Suspect]
     Dosage: 400 MG, DAILY
     Dates: start: 20130205, end: 20130227

REACTIONS (2)
  - Acute myocardial infarction [Recovered/Resolved with Sequelae]
  - Chest discomfort [Unknown]
